FAERS Safety Report 8930479 (Version 2)
Quarter: 2013Q1

REPORT INFORMATION
  Report Type: Spontaneous
  Country: CA (occurrence: CA)
  Receive Date: 20121128
  Receipt Date: 20130122
  Transmission Date: 20140127
  Serious: Yes (Other)
  Sender: FDA-Public Use
  Company Number: CA-SHIRE-ALL1-2012-05770

PATIENT
  Sex: Male

DRUGS (2)
  1. VYVANSE [Suspect]
     Indication: ATTENTION DEFICIT/HYPERACTIVITY DISORDER
     Dosage: UNK, UNKNOWN
     Route: 048
     Dates: start: 201206, end: 201211
  2. INSULIN [Concomitant]
     Indication: DIABETES MELLITUS
     Dosage: UNK, UNKNOWN
     Route: 065

REACTIONS (3)
  - Hepatic enzyme abnormal [Unknown]
  - Neutropenia [Unknown]
  - Weight decreased [Unknown]
